FAERS Safety Report 7789747-7 (Version None)
Quarter: 2011Q3

REPORT INFORMATION
  Report Type: 
  Country: None (occurrence: None)
  Receive Date: 20110930
  Receipt Date: 20110721
  Transmission Date: 20111222
  Serious: No
  Sender: FDA-Public Use
  Company Number: US-ASTRAZENECA-2011SE43808

PATIENT
  Sex: Female

DRUGS (1)
  1. ARIMIDEX [Suspect]
     Route: 048
     Dates: start: 20090801

REACTIONS (3)
  - NEUROPATHY PERIPHERAL [None]
  - CONNECTIVE TISSUE DISORDER [None]
  - ARTHRITIS [None]
